FAERS Safety Report 7786455-3 (Version None)
Quarter: 2011Q3

REPORT INFORMATION
  Report Type: 
  Country: None (occurrence: None)
  Receive Date: 20110929
  Receipt Date: 20110921
  Transmission Date: 20111222
  Serious: Yes (Hospitalization, Other)
  Sender: FDA-Public Use
  Company Number: CA-JNJFOC-20110810553

PATIENT
  Sex: Male

DRUGS (3)
  1. UNKNOWN MEDICATION [Concomitant]
     Route: 065
  2. INVEGA [Suspect]
     Route: 065
     Dates: start: 20101001, end: 20110401
  3. INVEGA [Suspect]
     Indication: PRODUCT USED FOR UNKNOWN INDICATION
     Route: 065
     Dates: start: 20110701

REACTIONS (4)
  - CYST [None]
  - BLOOD PROLACTIN INCREASED [None]
  - HOSPITALISATION [None]
  - TREATMENT NONCOMPLIANCE [None]
